FAERS Safety Report 10172966 (Version 1)
Quarter: 2014Q2

REPORT INFORMATION
  Report Type: Spontaneous
  Country: US (occurrence: None)
  Receive Date: 20140514
  Receipt Date: 20140514
  Transmission Date: 20141212
  Serious: Yes (Hospitalization)
  Sender: FDA-Public Use
  Company Number: None

PATIENT
  Age: 60 Year
  Sex: Male
  Weight: 102.06 kg

DRUGS (9)
  1. GAMMAGARD 30GM [Suspect]
     Indication: CHRONIC INFLAMMATORY DEMYELINATING POLYRADICULONEUROPATHY
     Route: 042
     Dates: start: 20140502
  2. GAMMAGARD 5GM [Suspect]
     Indication: CHRONIC INFLAMMATORY DEMYELINATING POLYRADICULONEUROPATHY
     Route: 042
     Dates: start: 20140502
  3. ALDACTONE [Concomitant]
  4. ALTACE [Concomitant]
  5. ASPIRIN [Concomitant]
  6. CELEBREX [Concomitant]
  7. GLUCOSAMINE CHONDROITIN [Concomitant]
  8. MULTIVITAMIN [Concomitant]
  9. PREDNISONE [Concomitant]

REACTIONS (1)
  - Pulmonary embolism [None]
